FAERS Safety Report 13648018 (Version 1)
Quarter: 2017Q2

REPORT INFORMATION
  Report Type: Spontaneous
  Country: CA (occurrence: CA)
  Receive Date: 20170613
  Receipt Date: 20170613
  Transmission Date: 20170830
  Serious: Yes (Other)
  Sender: FDA-Public Use
  Company Number: CA-JNJFOC-20170608299

PATIENT
  Age: 75 Year
  Sex: Male

DRUGS (18)
  1. LEVOTHYROXINE. [Concomitant]
     Active Substance: LEVOTHYROXINE
     Route: 065
  2. METHYLPREDNISOLONE SODIUM SUCCINATE. [Concomitant]
     Active Substance: METHYLPREDNISOLONE SODIUM SUCCINATE
     Route: 042
  3. PIROXICAM. [Concomitant]
     Active Substance: PIROXICAM
     Route: 061
  4. DIGOXIN. [Concomitant]
     Active Substance: DIGOXIN
     Route: 065
  5. XARELTO [Suspect]
     Active Substance: RIVAROXABAN
     Indication: PRODUCT USED FOR UNKNOWN INDICATION
     Route: 048
  6. NITROGLYCERIN. [Concomitant]
     Active Substance: NITROGLYCERIN
     Route: 065
  7. VITAMIN D3 [Concomitant]
     Active Substance: CHOLECALCIFEROL
     Route: 065
  8. LOSEC [Concomitant]
     Active Substance: OMEPRAZOLE
     Route: 065
  9. DIPHENHYDRAMINE. [Concomitant]
     Active Substance: DIPHENHYDRAMINE
     Route: 048
  10. TOCILIZUMAB [Suspect]
     Active Substance: TOCILIZUMAB
     Indication: RHEUMATOID ARTHRITIS
     Route: 042
  11. BUDESONIDE. [Concomitant]
     Active Substance: BUDESONIDE
     Route: 065
  12. FOLIC ACID. [Concomitant]
     Active Substance: FOLIC ACID
     Route: 065
  13. RITUXAN [Suspect]
     Active Substance: RITUXIMAB
     Indication: RHEUMATOID ARTHRITIS
     Route: 042
  14. DICLOFENAC [Concomitant]
     Active Substance: DICLOFENAC
     Route: 065
  15. CARVEDILOL. [Concomitant]
     Active Substance: CARVEDILOL
     Route: 065
  16. PREDNISONE. [Concomitant]
     Active Substance: PREDNISONE
     Route: 065
  17. RAMIPRIL. [Concomitant]
     Active Substance: RAMIPRIL
     Route: 065
  18. VENLAFAXINE HYDROCHLORIDE. [Concomitant]
     Active Substance: VENLAFAXINE HYDROCHLORIDE
     Route: 065

REACTIONS (10)
  - Arthralgia [Not Recovered/Not Resolved]
  - Therapy non-responder [Not Recovered/Not Resolved]
  - Abdominal pain upper [Not Recovered/Not Resolved]
  - Peripheral swelling [Not Recovered/Not Resolved]
  - Joint swelling [Not Recovered/Not Resolved]
  - Nausea [Not Recovered/Not Resolved]
  - Drug effect decreased [Not Recovered/Not Resolved]
  - Epistaxis [Not Recovered/Not Resolved]
  - Infusion related reaction [Not Recovered/Not Resolved]
  - Upper respiratory tract infection [Not Recovered/Not Resolved]
